FAERS Safety Report 4466998-0 (Version None)
Quarter: 2004Q3

REPORT INFORMATION
  Report Type: 
  Country: None (occurrence: None)
  Receive Date: 20040930
  Receipt Date: 20040916
  Transmission Date: 20050211
  Serious: Yes (Other)
  Sender: FDA-Public Use
  Company Number: 2004234358US

PATIENT
  Sex: Female

DRUGS (8)
  1. PROVERA [Suspect]
     Indication: HORMONE REPLACEMENT THERAPY
     Dates: start: 19850101, end: 19950101
  2. PREMARIN [Suspect]
     Dates: start: 19850101, end: 19950101
  3. CYCRIN [Suspect]
     Dates: start: 19850101, end: 19950101
  4. CURRETAB [Suspect]
     Dates: start: 19850101, end: 19950101
  5. ESTRACE [Suspect]
     Dates: start: 19850101, end: 19950101
  6. VIVELLE [Suspect]
     Dates: start: 19850101, end: 19950101
  7. ESTRATEST [Suspect]
     Dates: start: 19850101, end: 19950101
  8. PREMPRO [Suspect]
     Dates: start: 19950101, end: 20020101

REACTIONS (1)
  - BREAST CANCER FEMALE [None]
